FAERS Safety Report 5928853-6 (Version None)
Quarter: 2008Q4

REPORT INFORMATION
  Report Type: 
  Country: None (occurrence: None)
  Receive Date: 20081024
  Receipt Date: 20081021
  Transmission Date: 20090506
  Serious: Yes (Hospitalization)
  Sender: FDA-Public Use
  Company Number: US-WYE-H06484508

PATIENT
  Sex: Male
  Weight: 95.34 kg

DRUGS (4)
  1. PRISTIQ [Suspect]
     Indication: DEPRESSION
     Route: 048
     Dates: start: 20081003
  2. AMITRIPTYLINE HCL [Concomitant]
     Indication: SLEEP DISORDER
     Dosage: 300 MG
  3. AMITRIPTYLINE HCL [Concomitant]
     Dosage: 75 MG HS
     Dates: end: 20081012
  4. QUETIAPINE FUMARATE [Concomitant]
     Dosage: UNKNOWN

REACTIONS (2)
  - ATRIOVENTRICULAR BLOCK [None]
  - LOSS OF CONSCIOUSNESS [None]
